FAERS Safety Report 6238189-4 (Version None)
Quarter: 2009Q2

REPORT INFORMATION
  Report Type: 
  Country: None (occurrence: None)
  Receive Date: 20090617
  Receipt Date: 20080627
  Transmission Date: 20091009
  Serious: No
  Sender: FDA-Public Use
  Company Number: 276841

PATIENT
  Age: 77 Year
  Sex: Male
  Weight: 89.8 kg

DRUGS (8)
  1. NOVOLOG [Suspect]
     Indication: TYPE 1 DIABETES MELLITUS
     Dosage: SLIDING SCALE, SUBCUTANEOUS
     Route: 058
  2. LEVEMIR [Suspect]
     Indication: TYPE 1 DIABETES MELLITUS
     Dosage: 18 IU, SUBCUTANEOUS
     Route: 058
  3. BENICAR [Concomitant]
  4. WARFARIN SODIUM [Concomitant]
  5. DOXAZOSIN MESYLATE [Concomitant]
  6. AMLODIPINE [Concomitant]
  7. ERGOCALCIFEROL [Concomitant]
  8. ASPIRIN [Concomitant]

REACTIONS (1)
  - BLOOD GLUCOSE INCREASED [None]
